FAERS Safety Report 11121654 (Version 1)
Quarter: 2015Q2

REPORT INFORMATION
  Report Type: Spontaneous
  Country: IT (occurrence: IT)
  Receive Date: 20150519
  Receipt Date: 20150519
  Transmission Date: 20150821
  Serious: Yes (Other)
  Sender: FDA-Public Use
  Company Number: IT-SA-2015SA064075

PATIENT
  Age: 45 Year
  Sex: Female
  Weight: 80 kg

DRUGS (3)
  1. OMNIC [Concomitant]
     Active Substance: TAMSULOSIN HYDROCHLORIDE
     Indication: URINARY RETENTION
  2. LYRICA [Concomitant]
     Active Substance: PREGABALIN
     Indication: PARAESTHESIA
     Route: 048
  3. LEMTRADA [Suspect]
     Active Substance: ALEMTUZUMAB
     Indication: MULTIPLE SCLEROSIS
     Route: 042
     Dates: start: 20140714, end: 20140717

REACTIONS (2)
  - Pyrexia [Unknown]
  - Cystitis haemorrhagic [Unknown]

NARRATIVE: CASE EVENT DATE: 20140718
